FAERS Safety Report 9000367 (Version 1)
Quarter: 2012Q4

REPORT INFORMATION
  Report Type: Spontaneous
  Country: US (occurrence: None)
  Receive Date: 20121221
  Receipt Date: 20121221
  Transmission Date: 20130627
  Serious: Yes (Hospitalization)
  Sender: FDA-Public Use
  Company Number: 2012-669

PATIENT
  Age: 72 Year
  Sex: Male
  Weight: 98.9 kg

DRUGS (14)
  1. PRIALT [Suspect]
     Indication: LOW  BACK PAIN
     Dosage: mcg, once/hour, Intrathecal
     Dates: start: 201203
  2. PRIALT [Suspect]
     Indication: LOW  BACK PAIN
     Dosage: 0.24 mcg, once/hour, intrathecal
     Dates: start: 201211
  3. OXYCODONE HCL (OXYCODONE HYDROCHLORIDE) [Concomitant]
  4. METHADONE HCL (METHADONE HYDROCHLORIDE) [Concomitant]
  5. ACCUPRIL (QUINAPRIL HYDROCHLRODIE) [Concomitant]
  6. ASPIRIN (ACETYLSALICYLIC ACID) [Concomitant]
  7. PREVACID (LANSOPRAZOLE) [Concomitant]
  8. LIDODERM (LIDOCAINE) [Concomitant]
  9. CALCIUM (CALCIUM) [Concomitant]
  10. POTASSIUM (POTASSIUM) [Concomitant]
  11. PROVIGIL (MODAFINIL) [Concomitant]
  12. NEURONTIN (GABAPENTIN) [Concomitant]
  13. CLONIDINE HCL (CLONIDINE HYDROCHLORIDE) [Concomitant]
  14. VITAMIN E (TOCOPHERYL ACETATE) [Concomitant]

REACTIONS (7)
  - Gangrene [None]
  - Malaise [None]
  - Influenza like illness [None]
  - Hypoaesthesia [None]
  - Paraesthesia [None]
  - Device deposit issue [None]
  - Device leakage [None]
